FAERS Safety Report 6828908-8 (Version None)
Quarter: 2010Q3

REPORT INFORMATION
  Report Type: 
  Country: None (occurrence: None)
  Receive Date: 20100706
  Receipt Date: 20100620
  Transmission Date: 20110219
  Serious: Yes (Death, Other)
  Sender: FDA-Public Use
  Company Number: 010021

PATIENT
  Age: 63 Year
  Sex: Female

DRUGS (2)
  1. BUSULFEX [Suspect]
     Indication: STEM CELL TRANSPLANT
     Dosage: INTRAVENOUS
     Route: 042
  2. FLUDARABINE PHOSPHATE [Concomitant]

REACTIONS (1)
  - LEUKAEMIA RECURRENT [None]
